FAERS Safety Report 8184378-1 (Version None)
Quarter: 2012Q1

REPORT INFORMATION
  Report Type: 
  Country: None (occurrence: None)
  Receive Date: 20120305
  Receipt Date: 20120228
  Transmission Date: 20120608
  Serious: Yes (Other)
  Sender: FDA-Public Use
  Company Number: GB-JNJFOC-20120301279

PATIENT
  Sex: Female

DRUGS (2)
  1. NICORETTE [Suspect]
     Route: 062
  2. NICORETTE [Suspect]
     Indication: SMOKING CESSATION THERAPY
     Route: 062

REACTIONS (1)
  - CEREBROVASCULAR ACCIDENT [None]
